FAERS Safety Report 5312927-7 (Version None)
Quarter: 2007Q1

REPORT INFORMATION
  Report Type: 
  Country: None (occurrence: None)
  Receive Date: 20070201
  Receipt Date: 20061109
  Transmission Date: 20070707
  Serious: Yes (Other)
  Sender: FDA-Public Use
  Company Number: VNL_0290_2006

PATIENT
  Age: 79 Year
  Sex: Male
  Weight: 65.7716 kg

DRUGS (10)
  1. APOKYN [Suspect]
     Indication: PARKINSON'S DISEASE
     Dosage: 0.2 ML VARIABLE SC
     Route: 058
     Dates: start: 20060901
  2. ZETIA [Concomitant]
  3. DETROL LA [Concomitant]
  4. FLOMAX [Concomitant]
  5. PROSCAR [Concomitant]
  6. DIGOXIN [Concomitant]
  7. VITAMIN CAP [Concomitant]
  8. VITAMIN B [Concomitant]
  9. XANAX [Concomitant]
  10. LEXAPRO [Concomitant]

REACTIONS (2)
  - DYSKINESIA [None]
  - FALL [None]
